FAERS Safety Report 5396635-2 (Version None)
Quarter: 2007Q3

REPORT INFORMATION
  Report Type: 
  Country: None (occurrence: None)
  Receive Date: 20070725
  Receipt Date: 20070719
  Transmission Date: 20080115
  Serious: Yes (Congenital Anomaly)
  Sender: FDA-Public Use
  Company Number: A0656659A

PATIENT
  Sex: Male

DRUGS (5)
  1. LAMOTRIGINE [Suspect]
     Indication: SUICIDAL IDEATION
     Dosage: 100MG PER DAY
     Dates: start: 20060502
  2. LEXAPRO [Concomitant]
     Dosage: 20MG PER DAY
  3. FOLIC ACID [Concomitant]
  4. DEPAKOTE [Concomitant]
     Dosage: 100MG PER DAY
  5. GEODON [Concomitant]
     Dosage: 160MG PER DAY

REACTIONS (3)
  - CARDIAC MURMUR [None]
  - DRUG EXPOSURE DURING PREGNANCY [None]
  - TALIPES [None]
